FAERS Safety Report 6194572-7 (Version None)
Quarter: 2009Q2

REPORT INFORMATION
  Report Type: 
  Country: None (occurrence: None)
  Receive Date: 20090519
  Receipt Date: 20090512
  Transmission Date: 20091009
  Serious: Yes (Hospitalization)
  Sender: FDA-Public Use
  Company Number: AR-ROCHE-632839

PATIENT
  Sex: Female

DRUGS (3)
  1. MYCOPHENOLATE MOFETIL [Suspect]
     Indication: LUPUS NEPHRITIS
     Route: 065
     Dates: start: 20081101, end: 20090511
  2. BLINDED OCRELIZUMAB [Suspect]
     Indication: LUPUS NEPHRITIS
     Dosage: FORM:IV, DATE OF LAST DOSE PRIOR TO EVENT:26 JAN 2009
     Route: 042
     Dates: start: 20081006
  3. PREDNISONE [Suspect]
     Indication: LUPUS NEPHRITIS
     Route: 065
     Dates: start: 20090422

REACTIONS (1)
  - EAR INFECTION [None]
